FAERS Safety Report 24794823 (Version 1)
Quarter: 2024Q4

REPORT INFORMATION
  Report Type: Spontaneous
  Country: US (occurrence: None)
  Receive Date: 20241231
  Receipt Date: 20241231
  Transmission Date: 20250114
  Serious: Yes (Other)
  Sender: Public
  Company Number: None

PATIENT
  Age: 68 Year
  Sex: Female
  Weight: 87.75 kg

DRUGS (1)
  1. GAMUNEX [Suspect]
     Active Substance: HUMAN IMMUNOGLOBULIN G
     Indication: Myositis
     Dosage: FREQUENCY : DAILY;?
     Route: 042
     Dates: start: 20241226

REACTIONS (4)
  - Tremor [None]
  - Hyperhidrosis [None]
  - Pyrexia [None]
  - Blood glucose increased [None]

NARRATIVE: CASE EVENT DATE: 20241226
